FAERS Safety Report 13457443 (Version 1)
Quarter: 2017Q2

REPORT INFORMATION
  Report Type: Spontaneous
  Country: US (occurrence: US)
  Receive Date: 20170419
  Receipt Date: 20170419
  Transmission Date: 20170830
  Serious: No
  Sender: FDA-Public Use
  Company Number: US-JNJFOC-20170410254

PATIENT
  Age: 55 Year
  Sex: Male
  Weight: 67.13 kg

DRUGS (3)
  1. ZYRTEC [Suspect]
     Active Substance: CETIRIZINE HYDROCHLORIDE
     Indication: RHINORRHOEA
     Dosage: 1 DISSOLVE TABLET
     Route: 048
     Dates: start: 20170321, end: 20170403
  2. ZYRTEC [Suspect]
     Active Substance: CETIRIZINE HYDROCHLORIDE
     Indication: MULTIPLE ALLERGIES
     Dosage: 1 DISSOLVE TABLET
     Route: 048
     Dates: start: 20170321, end: 20170403
  3. ZETIA [Concomitant]
     Active Substance: EZETIMIBE
     Indication: BLOOD CHOLESTEROL ABNORMAL
     Dosage: YEARS
     Route: 065

REACTIONS (1)
  - Drug ineffective [Unknown]
